FAERS Safety Report 21266256 (Version 2)
Quarter: 2022Q3

REPORT INFORMATION
  Report Type: Spontaneous
  Country: GB (occurrence: GB)
  Receive Date: 20220829
  Receipt Date: 20220909
  Transmission Date: 20221027
  Serious: Yes (Other)
  Sender: FDA-Public Use
  Company Number: GB-UCBSA-2022050133

PATIENT
  Age: 58 Year
  Sex: Female
  Weight: 58.06 kg

DRUGS (3)
  1. BRIVIACT [Suspect]
     Active Substance: BRIVARACETAM
     Indication: Product used for unknown indication
     Dosage: 1.5 X 25MG MORNING AND 2 X 25MG EVENING
     Dates: start: 202109
  2. OXCARBAZEPINE [Concomitant]
     Active Substance: OXCARBAZEPINE
     Dosage: 600 MILLIGRAM, 2X/DAY (BID)
     Route: 048
  3. CLOBAZAM [Concomitant]
     Active Substance: CLOBAZAM
     Dosage: 10 MILLIGRAM, AS NEEDED (PRN)
     Route: 048

REACTIONS (3)
  - Seizure [Unknown]
  - Product use issue [Unknown]
  - Product supply issue [Unknown]

NARRATIVE: CASE EVENT DATE: 20220715
